FAERS Safety Report 7790995-0 (Version None)
Quarter: 2011Q4

REPORT INFORMATION
  Report Type: 
  Country: None (occurrence: None)
  Receive Date: 20111002
  Receipt Date: 20110921
  Transmission Date: 20120403
  Serious: Yes (Hospitalization)
  Sender: FDA-Public Use
  Company Number: IT-BRISTOL-MYERS SQUIBB COMPANY-16115230

PATIENT
  Age: 72 Year
  Sex: Male

DRUGS (6)
  1. IRINOTECAN HCL [Concomitant]
     Route: 042
     Dates: start: 20110721, end: 20110721
  2. LEDERFOLINE [Concomitant]
     Route: 042
     Dates: start: 20110721, end: 20110722
  3. LENOGRASTIM [Concomitant]
     Dosage: 1DF=1U
     Route: 058
     Dates: start: 20110806, end: 20110807
  4. ALDACTONE [Concomitant]
     Route: 048
     Dates: start: 20110721, end: 20110807
  5. FLUOROURACIL [Concomitant]
     Route: 042
     Dates: start: 20110721, end: 20110722
  6. ERBITUX [Suspect]
     Indication: COLON CANCER
     Dosage: 5MG/ML, INTERR 4AUG11
     Route: 042
     Dates: start: 20110721

REACTIONS (4)
  - NEUTROPENIA [None]
  - HYPERBILIRUBINAEMIA [None]
  - PRESYNCOPE [None]
  - PYREXIA [None]
